FAERS Safety Report 7571826-0 (Version None)
Quarter: 2011Q2

REPORT INFORMATION
  Report Type: 
  Country: None (occurrence: None)
  Receive Date: 20110624
  Receipt Date: 20110621
  Transmission Date: 20111010
  Serious: Yes (Other)
  Sender: FDA-Public Use
  Company Number: US-PFIZER INC-2011118083

PATIENT
  Sex: Male

DRUGS (1)
  1. CHANTIX [Suspect]
     Indication: SMOKING CESSATION THERAPY
     Dosage: UNK
     Dates: start: 20101201, end: 20110101

REACTIONS (5)
  - CONSTIPATION [None]
  - RENAL FAILURE ACUTE [None]
  - HEPATIC FAILURE [None]
  - DYSURIA [None]
  - SUICIDAL IDEATION [None]
